FAERS Safety Report 17587478 (Version 1)
Quarter: 2020Q1

REPORT INFORMATION
  Report Type: Other
  Country: UG (occurrence: UG)
  Receive Date: 20200326
  Receipt Date: 20200326
  Transmission Date: 20200409
  Serious: Yes (Hospitalization, Other)
  Sender: FDA-Public Use
  Company Number: UG-APPCO PHARMA LLC-2082015

PATIENT
  Age: 10 Year
  Sex: Female

DRUGS (5)
  1. EFAVIRENZ. [Suspect]
     Active Substance: EFAVIRENZ
     Route: 065
  2. LAMIVUDINE. [Suspect]
     Active Substance: LAMIVUDINE
     Indication: HIV INFECTION
     Route: 065
  3. ZIDOVUDINE. [Suspect]
     Active Substance: ZIDOVUDINE
     Route: 065
  4. ABACAVIR. [Suspect]
     Active Substance: ABACAVIR
     Route: 065
  5. LOPINAVIR/RITONAVIR [Suspect]
     Active Substance: LOPINAVIR\RITONAVIR
     Route: 065

REACTIONS (5)
  - Treatment noncompliance [Unknown]
  - Therapy change [Unknown]
  - Virologic failure [Recovered/Resolved]
  - Immune reconstitution inflammatory syndrome [Recovered/Resolved]
  - Meningitis cryptococcal [Recovered/Resolved]
